FAERS Safety Report 16405707 (Version 1)
Quarter: 2019Q2

REPORT INFORMATION
  Report Type: Spontaneous
  Country: JP (occurrence: JP)
  Receive Date: 20190607
  Receipt Date: 20190607
  Transmission Date: 20190711
  Serious: Yes (Death)
  Sender: FDA-Public Use
  Company Number: GXJP2019JP001031

PATIENT
  Age: 72 Year
  Sex: Female

DRUGS (4)
  1. TACROLIMUS. [Concomitant]
     Active Substance: TACROLIMUS
     Indication: INTERSTITIAL LUNG DISEASE
     Dosage: UNK
     Route: 065
  2. RIFAMPICIN CAPSULES [Suspect]
     Active Substance: RIFAMPIN
     Indication: ATYPICAL MYCOBACTERIAL INFECTION
     Dosage: UNK
     Route: 048
  3. ETHAMBUTOL [Concomitant]
     Active Substance: ETHAMBUTOL HYDROCHLORIDE
     Indication: ATYPICAL MYCOBACTERIAL INFECTION
     Dosage: UNK
     Route: 065
  4. CLARITHROMYCIN. [Concomitant]
     Active Substance: CLARITHROMYCIN
     Indication: ATYPICAL MYCOBACTERIAL INFECTION
     Dosage: UNK
     Route: 065

REACTIONS (1)
  - Pneumonia [Fatal]
